FAERS Safety Report 16660018 (Version 2)
Quarter: 2020Q2

REPORT INFORMATION
  Report Type: Spontaneous
  Country: US (occurrence: US)
  Receive Date: 20190802
  Receipt Date: 20200406
  Transmission Date: 20200713
  Serious: No
  Sender: FDA-Public Use
  Company Number: US-ELI_LILLY_AND_COMPANY-US201908000407

PATIENT
  Age: 68 Year
  Sex: Female

DRUGS (4)
  1. TRULICITY [Suspect]
     Active Substance: DULAGLUTIDE
     Indication: TYPE 2 DIABETES MELLITUS
     Dosage: 1.5 MG, UNKNOWN
     Route: 065
     Dates: start: 201907, end: 202002
  2. TRULICITY [Suspect]
     Active Substance: DULAGLUTIDE
     Dosage: 1.5 MG, UNKNOWN
     Route: 065
     Dates: start: 20200329
  3. NOVOLOG [Concomitant]
     Active Substance: INSULIN ASPART
     Indication: TYPE 2 DIABETES MELLITUS
  4. LEVEMIR [Concomitant]
     Active Substance: INSULIN DETEMIR
     Indication: TYPE 2 DIABETES MELLITUS

REACTIONS (8)
  - Hypoaesthesia oral [Not Recovered/Not Resolved]
  - Chills [Not Recovered/Not Resolved]
  - Gastrooesophageal reflux disease [Unknown]
  - Vomiting [Unknown]
  - Diarrhoea [Not Recovered/Not Resolved]
  - Constipation [Recovering/Resolving]
  - Decreased appetite [Unknown]
  - Eructation [Unknown]

NARRATIVE: CASE EVENT DATE: 20200331
